FAERS Safety Report 5837845-7 (Version None)
Quarter: 2008Q3

REPORT INFORMATION
  Report Type: 
  Country: None (occurrence: None)
  Receive Date: 20080808
  Receipt Date: 20080131
  Transmission Date: 20090109
  Serious: No
  Sender: FDA-Public Use
  Company Number: A0701515A

PATIENT
  Age: 64 Year
  Sex: Male
  Weight: 72.7 kg

DRUGS (3)
  1. PAXIL CR [Suspect]
     Indication: DRUG USE FOR UNKNOWN INDICATION
     Dosage: 12.5MG UNKNOWN
     Route: 048
  2. METFORMIN HCL [Concomitant]
     Dosage: 500U TWICE PER DAY
  3. LISINOPRIL [Concomitant]
     Dosage: 5MG PER DAY

REACTIONS (3)
  - ADVERSE DRUG REACTION [None]
  - HYPOKINESIA [None]
  - LETHARGY [None]
